FAERS Safety Report 5530214-9 (Version None)
Quarter: 2007Q4

REPORT INFORMATION
  Report Type: 
  Country: None (occurrence: None)
  Receive Date: 20071127
  Receipt Date: 20071114
  Transmission Date: 20080405
  Serious: Yes (Hospitalization)
  Sender: FDA-Public Use
  Company Number: 2007SP023089

PATIENT
  Age: 43 Year
  Sex: Female

DRUGS (2)
  1. PEG-INTRON [Suspect]
     Indication: HEPATITIS C
     Dosage: SC
     Route: 058
     Dates: start: 20070806
  2. REBETOL [Suspect]
     Indication: HEPATITIS C
     Dosage: PO
     Route: 048
     Dates: start: 20070806

REACTIONS (8)
  - ANAEMIA [None]
  - CHRONIC OBSTRUCTIVE PULMONARY DISEASE [None]
  - FEELING GUILTY [None]
  - MALAISE [None]
  - NO THERAPEUTIC RESPONSE [None]
  - PULMONARY EMBOLISM [None]
  - RESIDUAL URINE [None]
  - URINARY TRACT INFECTION [None]
